FAERS Safety Report 17493110 (Version 1)
Quarter: 2020Q1

REPORT INFORMATION
  Report Type: Spontaneous
  Country: SE (occurrence: SE)
  Receive Date: 20200303
  Receipt Date: 20200303
  Transmission Date: 20200409
  Serious: Yes (Life-Threatening)
  Sender: FDA-Public Use
  Company Number: SE-PFIZER INC-2020094812

PATIENT
  Age: 46 Year
  Sex: Male

DRUGS (1)
  1. SULFASALAZINE. [Suspect]
     Active Substance: SULFASALAZINE
     Indication: SPONDYLITIS
     Dosage: 2000 MG, UNK
     Dates: start: 20191227, end: 20200205

REACTIONS (4)
  - Neutropenia [Recovering/Resolving]
  - Product use in unapproved indication [Unknown]
  - Off label use [Unknown]
  - Tonsillitis [Recovered/Resolved]

NARRATIVE: CASE EVENT DATE: 20191227
